FAERS Safety Report 5240413-1 (Version None)
Quarter: 2007Q1

REPORT INFORMATION
  Report Type: 
  Country: None (occurrence: None)
  Receive Date: 20070219
  Receipt Date: 20070205
  Transmission Date: 20070707
  Serious: Yes (Other)
  Sender: FDA-Public Use
  Company Number: PHEH2007US01653

PATIENT
  Age: 78 Year
  Sex: Female
  Weight: 83.9 kg

DRUGS (5)
  1. BYETTA [Suspect]
     Indication: DIABETES MELLITUS NON-INSULIN-DEPENDENT
     Dosage: 5 MCG, BID
     Route: 058
     Dates: start: 20051201, end: 20060123
  2. BYETTA [Suspect]
     Dosage: 10 MCG, BID
     Route: 058
     Dates: start: 20060124
  3. BYETTA [Suspect]
     Dosage: 5 MCG, BID
     Route: 058
  4. LISINOPRIL [Suspect]
     Dosage: 20 MG, QD
     Dates: start: 20051228, end: 20060101
  5. STARLIX [Suspect]

REACTIONS (9)
  - ABDOMINAL DISTENSION [None]
  - BLOOD GLUCOSE INCREASED [None]
  - DECREASED APPETITE [None]
  - DIZZINESS [None]
  - HYPOTENSION [None]
  - NAUSEA [None]
  - VOMITING [None]
  - WEIGHT DECREASED [None]
  - WEIGHT INCREASED [None]
